FAERS Safety Report 19520763 (Version 1)
Quarter: 2021Q3

REPORT INFORMATION
  Report Type: Spontaneous
  Country: US (occurrence: US)
  Receive Date: 20210712
  Receipt Date: 20210712
  Transmission Date: 20211014
  Serious: Yes (Other)
  Sender: FDA-Public Use
  Company Number: US-PFIZER INC-2021801244

PATIENT
  Age: 70 Year
  Sex: Female
  Weight: 72.12 kg

DRUGS (1)
  1. XELJANZ [Suspect]
     Active Substance: TOFACITINIB CITRATE
     Indication: RHEUMATOID ARTHRITIS
     Dosage: UNKNOWN DOSE, 2X/DAY( TWICE A DAY)

REACTIONS (2)
  - Tongue neoplasm malignant stage unspecified [Recovered/Resolved]
  - Drug ineffective [Unknown]
